FAERS Safety Report 20299527 (Version 3)
Quarter: 2022Q1

REPORT INFORMATION
  Report Type: Spontaneous
  Country: IN (occurrence: IN)
  Receive Date: 20220105
  Receipt Date: 20220322
  Transmission Date: 20220423
  Serious: Yes (Death, Hospitalization, Other)
  Sender: FDA-Public Use
  Company Number: IN-PFIZER INC-202101852766

PATIENT
  Age: 58 Year
  Sex: Female

DRUGS (2)
  1. PALBOCICLIB [Suspect]
     Active Substance: PALBOCICLIB
     Indication: Breast cancer metastatic
     Dosage: 125 MG, CYCLIC(21 DAYS AND 7 DAYS OFF)
     Route: 048
     Dates: start: 202106
  2. PALBOCICLIB [Suspect]
     Active Substance: PALBOCICLIB
     Dosage: 125 MG, 1X/DAY
     Route: 048
     Dates: start: 20210911

REACTIONS (7)
  - COVID-19 [Fatal]
  - Neoplasm progression [Fatal]
  - Pathological fracture [Unknown]
  - Chest pain [Unknown]
  - Haemoglobin abnormal [Unknown]
  - Product dose omission issue [Unknown]
  - Asthenia [Unknown]
